FAERS Safety Report 6820164-X (Version None)
Quarter: 2010Q3

REPORT INFORMATION
  Report Type: 
  Country: None (occurrence: None)
  Receive Date: 20100707
  Receipt Date: 20100702
  Transmission Date: 20110219
  Serious: Yes (Disabling)
  Sender: FDA-Public Use
  Company Number: IE-MERCK-1007GBR00017

PATIENT
  Age: 41 Year
  Sex: Male

DRUGS (2)
  1. FOSAMAX PLUS D [Suspect]
     Indication: OSTEOPOROSIS
     Route: 048
     Dates: start: 20090701, end: 20100401
  2. CALCIUM CARBONATE AND CHOLECALCIFEROL [Concomitant]
     Route: 065

REACTIONS (1)
  - ERECTILE DYSFUNCTION [None]
